FAERS Safety Report 14372465 (Version 8)
Quarter: 2018Q2

REPORT INFORMATION
  Report Type: Report from Study
  Country: US (occurrence: US)
  Receive Date: 20180110
  Receipt Date: 20180525
  Transmission Date: 20180711
  Serious: Yes (Death, Hospitalization, Other)
  Sender: FDA-Public Use
  Company Number: US-ACTELION-A-NJ2017-149745

PATIENT
  Age: 80 Year
  Sex: Female
  Weight: 47.17 kg

DRUGS (8)
  1. OPSUMIT [Suspect]
     Active Substance: MACITENTAN
     Indication: PULMONARY ARTERIAL HYPERTENSION
     Dosage: 10 MG, QD
     Route: 048
  2. TYVASO [Suspect]
     Active Substance: TREPROSTINIL
     Indication: PRODUCT USED FOR UNKNOWN INDICATION
     Dosage: UNK
     Route: 065
  3. ELIQUIS [Concomitant]
     Active Substance: APIXABAN
  4. ADEMPAS [Suspect]
     Active Substance: RIOCIGUAT
     Dosage: 2 MG, UNK
     Route: 065
     Dates: end: 20180227
  5. OPSUMIT [Suspect]
     Active Substance: MACITENTAN
     Dosage: 10 MG, QD
     Route: 048
  6. ADEMPAS [Suspect]
     Active Substance: RIOCIGUAT
     Indication: PRODUCT USED FOR UNKNOWN INDICATION
     Dosage: 0.5 MG, UNK
     Route: 048
     Dates: start: 20180227
  7. ADCIRCA [Concomitant]
     Active Substance: TADALAFIL
  8. AMLODIPINE [Concomitant]
     Active Substance: AMLODIPINE BESYLATE

REACTIONS (24)
  - Bronchitis [Unknown]
  - Influenza [Unknown]
  - Wheezing [Unknown]
  - Dyspnoea at rest [Not Recovered/Not Resolved]
  - Nasopharyngitis [Unknown]
  - Fluid retention [Unknown]
  - Weight increased [Unknown]
  - Productive cough [Unknown]
  - Cough [Unknown]
  - Dyspnoea exertional [Not Recovered/Not Resolved]
  - Nasal congestion [Unknown]
  - Hypertension [Unknown]
  - Pneumonia [Unknown]
  - Death [Fatal]
  - Blood pressure abnormal [Unknown]
  - Dizziness [Unknown]
  - Palpitations [Unknown]
  - Dyspnoea [Unknown]
  - Peripheral swelling [Unknown]
  - Pyrexia [Unknown]
  - Drug dose omission [Unknown]
  - Atrial fibrillation [Unknown]
  - Hypotension [Unknown]
  - Blood pressure systolic decreased [Unknown]

NARRATIVE: CASE EVENT DATE: 20171101
